FAERS Safety Report 15859108 (Version 1)
Quarter: 2019Q1

REPORT INFORMATION
  Report Type: Spontaneous
  Country: PT (occurrence: PT)
  Receive Date: 20190123
  Receipt Date: 20190123
  Transmission Date: 20190417
  Serious: Yes (Hospitalization, Other)
  Sender: FDA-Public Use
  Company Number: PT-MYLANLABS-2019M1005567

PATIENT
  Age: 51 Year
  Sex: Female

DRUGS (5)
  1. FUCIDINE                           /00065702/ [Concomitant]
     Active Substance: FUSIDATE SODIUM
     Indication: BLISTER
     Route: 061
     Dates: start: 20140119
  2. DESLORATADINE. [Concomitant]
     Active Substance: DESLORATADINE
     Indication: BLISTER
     Dosage: 1 DOSAGE FORM, QD
     Route: 048
     Dates: start: 201401
  3. OLFEN                              /00372302/ [Concomitant]
     Active Substance: DICLOFENAC SODIUM
     Indication: BLISTER
     Dosage: 100 MILLIGRAM, QD
     Route: 048
     Dates: start: 20140119
  4. ACARILBIAL [Concomitant]
     Indication: BLISTER
     Route: 061
     Dates: start: 201401, end: 20140126
  5. CIPROFLOXACIN. [Suspect]
     Active Substance: CIPROFLOXACIN
     Indication: BLISTER
     Dosage: 1000 MILLIGRAM, QD
     Route: 048
     Dates: start: 20140119, end: 20140126

REACTIONS (2)
  - Dermatitis bullous [Recovered/Resolved]
  - Toxic skin eruption [Recovered/Resolved]

NARRATIVE: CASE EVENT DATE: 20140125
